FAERS Safety Report 24782578 (Version 1)
Quarter: 2024Q4

REPORT INFORMATION
  Report Type: Spontaneous
  Country: US (occurrence: US)
  Receive Date: 20241227
  Receipt Date: 20241227
  Transmission Date: 20250115
  Serious: Yes (Hospitalization, Other)
  Sender: Kenvue
  Company Number: US-KENVUE CANADA INC.-20241206766

PATIENT
  Age: 24 Year
  Sex: Male

DRUGS (1)
  1. BENADRYL [Suspect]
     Active Substance: DIPHENHYDRAMINE HYDROCHLORIDE
     Indication: Product used for unknown indication
     Route: 048

REACTIONS (12)
  - Suicide attempt [Unknown]
  - Metabolic acidosis [Recovered/Resolved]
  - Leukocytosis [Recovered/Resolved]
  - Mucosal dryness [Unknown]
  - Alanine aminotransferase increased [Recovered/Resolved]
  - Aspartate aminotransferase increased [Recovered/Resolved]
  - Rhabdomyolysis [Recovered/Resolved]
  - Agitation [Unknown]
  - Delirium [Unknown]
  - Mydriasis [Unknown]
  - Acute kidney injury [Recovered/Resolved]
  - Intentional overdose [Unknown]
